FAERS Safety Report 11698498 (Version 3)
Quarter: 2016Q2

REPORT INFORMATION
  Report Type: Spontaneous
  Country: US (occurrence: US)
  Receive Date: 20151104
  Receipt Date: 20160511
  Transmission Date: 20160815
  Serious: No
  Sender: FDA-Public Use
  Company Number: US-MDT-ADR-2015-02080

PATIENT
  Age: 59 Year
  Sex: Male

DRUGS (9)
  1. COPAXONE [Suspect]
     Active Substance: GLATIRAMER ACETATE
  2. FLOMAX [Suspect]
     Active Substance: TAMSULOSIN HYDROCHLORIDE
  3. GABAPENTIN. [Suspect]
     Active Substance: GABAPENTIN
  4. VITAMIN D [Suspect]
     Active Substance: CHOLECALCIFEROL
  5. CYMBALTA [Suspect]
     Active Substance: DULOXETINE HYDROCHLORIDE
  6. CLARITIN-D 12 HOUR [Suspect]
     Active Substance: LORATADINE\PSEUDOEPHEDRINE SULFATE
  7. VICODIN [Suspect]
     Active Substance: ACETAMINOPHEN\HYDROCODONE BITARTRATE
  8. LIORESAL [Suspect]
     Active Substance: BACLOFEN
     Dosage: 327.54MCG/DAY
     Route: 037
  9. VITAMIN B12 [Suspect]
     Active Substance: CYANOCOBALAMIN

REACTIONS (2)
  - Muscle spasms [Unknown]
  - No therapeutic response [Unknown]

NARRATIVE: CASE EVENT DATE: 201505
